FAERS Safety Report 13066978 (Version 1)
Quarter: 2016Q4

REPORT INFORMATION
  Report Type: Spontaneous
  Country: BR (occurrence: BR)
  Receive Date: 20161227
  Receipt Date: 20161227
  Transmission Date: 20170207
  Serious: Yes (Hospitalization, Other)
  Sender: FDA-Public Use
  Company Number: BR-GILEAD-2016-0250608

PATIENT
  Age: 80 Year
  Sex: Male

DRUGS (10)
  1. DIPIRONE [Concomitant]
     Active Substance: METAMIZOLE SODIUM
     Dosage: 500 MG, UNK
  2. TACROLIMUS. [Concomitant]
     Active Substance: TACROLIMUS
     Dosage: 2 MG, UNK
  3. SOVALDI [Suspect]
     Active Substance: SOFOSBUVIR
     Indication: HEPATITIS C
     Dosage: 400 MG, UNK
     Route: 048
     Dates: start: 20160621, end: 20160912
  4. MYCOPHENOLATE SODIUM [Concomitant]
     Active Substance: MYCOPHENOLATE SODIUM
     Dosage: UNK
  5. BROMOPRIDE [Concomitant]
     Active Substance: BROMOPRIDE
     Dosage: 10 MG, UNK
  6. OLYSIO [Concomitant]
     Active Substance: SIMEPREVIR
     Dosage: UNK
     Route: 048
     Dates: start: 20160621, end: 20160912
  7. POLYVITAMINICO [Concomitant]
  8. HYDRALAZINE [Concomitant]
     Active Substance: HYDRALAZINE HYDROCHLORIDE
     Dosage: 50 MG, UNK
  9. INSULIN [Concomitant]
     Active Substance: INSULIN NOS
     Dosage: UNK
  10. EPOETIN ALFA [Concomitant]
     Active Substance: ERYTHROPOIETIN

REACTIONS (15)
  - Renal impairment [Unknown]
  - Device related sepsis [Unknown]
  - Dyspnoea [Unknown]
  - Embolism [Unknown]
  - Chest pain [Unknown]
  - Hyperkalaemia [Unknown]
  - Haemodialysis [Unknown]
  - Asthenia [Unknown]
  - Neuropathy peripheral [Unknown]
  - Gait disturbance [Unknown]
  - Wheelchair user [Unknown]
  - Amyotrophy [Unknown]
  - Muscular weakness [Unknown]
  - Fungal skin infection [Unknown]
  - Oxygen saturation decreased [Unknown]

NARRATIVE: CASE EVENT DATE: 2016
